FAERS Safety Report 8170870 (Version 4)
Quarter: 2014Q2

REPORT INFORMATION
  Report Type: Report from Study
  Country: BE (occurrence: BE)
  Receive Date: 20111006
  Receipt Date: 20140402
  Transmission Date: 20141212
  Serious: Yes (Hospitalization)
  Sender: FDA-Public Use
  Company Number: PHHO2011BE15413

PATIENT
  Sex: 0

DRUGS (11)
  1. BLINDED AFINITOR [Suspect]
     Indication: BREAST CANCER METASTATIC
     Dosage: CODE NOT BROKEN
     Route: 048
     Dates: start: 20110701, end: 20110906
  2. BLINDED NO TREATMENT RECEIVED [Suspect]
     Indication: BREAST CANCER METASTATIC
     Dosage: CODE NOT BROKEN
     Route: 048
     Dates: start: 20110701, end: 20110906
  3. BLINDED PLACEBO [Suspect]
     Indication: BREAST CANCER METASTATIC
     Dosage: CODE NOT BROKEN
     Route: 048
     Dates: start: 20110701, end: 20110906
  4. BLINDED AFINITOR [Suspect]
     Dosage: CODE NOT BROKEN
     Route: 048
     Dates: end: 20120717
  5. BLINDED NO TREATMENT RECEIVED [Suspect]
     Dosage: CODE NOT BROKEN
     Route: 048
     Dates: end: 20120717
  6. BLINDED PLACEBO [Suspect]
     Dosage: CODE NOT BROKEN
     Route: 048
     Dates: end: 20120717
  7. PRAVASTATIN [Suspect]
  8. COMPARATOR VINORELBINE [Suspect]
     Indication: BREAST CANCER METASTATIC
     Dosage: 25 MG/M2, QW
     Route: 065
     Dates: start: 20110701, end: 20110906
  9. COMPARATOR VINORELBINE [Suspect]
     Dosage: UNK
     Dates: end: 20120620
  10. COMPARATOR TRASTUZUMAB [Suspect]
     Indication: BREAST CANCER METASTATIC
     Dosage: 2 MG/KG, QW
     Route: 065
     Dates: start: 20110701, end: 20110906
  11. COMPARATOR TRASTUZUMAB [Suspect]
     Dosage: UNK
     Dates: end: 20120620

REACTIONS (1)
  - Hepatocellular injury [Recovered/Resolved]
